FAERS Safety Report 4774486-7 (Version None)
Quarter: 2005Q3

REPORT INFORMATION
  Report Type: 
  Country: None (occurrence: None)
  Receive Date: 20050919
  Receipt Date: 20050919
  Transmission Date: 20060218
  Serious: Yes (Hospitalization)
  Sender: FDA-Public Use
  Company Number: None

PATIENT
  Age: 71 Year
  Sex: Female
  Weight: 78.9 kg

DRUGS (3)
  1. ERBITUX 400 MG/M2 X 1 250 MG/M2 [Suspect]
     Indication: PANCREATIC CARCINOMA
     Dosage: WEEKLY IV
     Dates: start: 20050712, end: 20050816
  2. GEMCITABINE 50 MG/M2 [Suspect]
     Dosage: 2X WEEK IV
     Route: 042
     Dates: start: 20050719, end: 20050816
  3. RADIATION [Concomitant]

REACTIONS (4)
  - CEREBROVASCULAR ACCIDENT [None]
  - CHOLANGITIS [None]
  - SEPSIS [None]
  - STENT OCCLUSION [None]
